FAERS Safety Report 9196758 (Version 1)
Quarter: 2013Q1

REPORT INFORMATION
  Report Type: Spontaneous
  Country: IL (occurrence: IL)
  Receive Date: 20130328
  Receipt Date: 20130328
  Transmission Date: 20140127
  Serious: Yes (Death)
  Sender: FDA-Public Use
  Company Number: IL-ASTRAZENECA-2013SE19458

PATIENT
  Age: 73 Year
  Sex: Female

DRUGS (2)
  1. BRILINTA [Suspect]
     Indication: MYOCARDIAL INFARCTION
     Route: 048
  2. FLAVIX [Concomitant]
     Indication: MYOCARDIAL INFARCTION

REACTIONS (1)
  - Myocardial rupture [Fatal]
